FAERS Safety Report 6285104-3 (Version None)
Quarter: 2009Q3

REPORT INFORMATION
  Report Type: 
  Country: None (occurrence: None)
  Receive Date: 20090727
  Receipt Date: 20090716
  Transmission Date: 20100115
  Serious: Yes (Hospitalization, Other)
  Sender: FDA-Public Use
  Company Number: US-JNJFOC-20090601913

PATIENT
  Sex: Male
  Weight: 81.65 kg

DRUGS (10)
  1. REMICADE [Suspect]
     Route: 042
  2. REMICADE [Suspect]
     Dosage: STOPPED FOR 6 MONTHS AFTER NOV-2008
     Route: 042
  3. REMICADE [Suspect]
     Indication: COLITIS ULCERATIVE
     Dosage: INFUSIONS FOR SEVERAL YEARS
     Route: 042
  4. ASACOL [Concomitant]
  5. PREDNISONE TAB [Concomitant]
  6. ZOCOR [Concomitant]
  7. FLOMAX [Concomitant]
  8. AMBIEN [Concomitant]
  9. COUMADIN [Concomitant]
  10. ACTONEL [Concomitant]

REACTIONS (3)
  - BACK PAIN [None]
  - DIVERTICULAR PERFORATION [None]
  - INFUSION RELATED REACTION [None]
